FAERS Safety Report 21044449 (Version 1)
Quarter: 2022Q3

REPORT INFORMATION
  Report Type: Spontaneous
  Country: None (occurrence: CA)
  Receive Date: 20220705
  Receipt Date: 20220705
  Transmission Date: 20221026
  Serious: Yes (Death)
  Sender: FDA-Public Use
  Company Number: CA-B.Braun Medical Inc.-2130549

PATIENT
  Age: 78 Year
  Sex: Male

DRUGS (1)
  1. HEPARIN SODIUM IN DEXTROSE [Suspect]
     Active Substance: HEPARIN SODIUM

REACTIONS (6)
  - Cerebral haemorrhage [Fatal]
  - Accidental death [Fatal]
  - Coma [Fatal]
  - General physical health deterioration [Fatal]
  - Pneumonia [Fatal]
  - Subdural haematoma [Fatal]
